FAERS Safety Report 22783005 (Version 5)
Quarter: 2024Q1

REPORT INFORMATION
  Report Type: Report from Study
  Country: US (occurrence: US)
  Receive Date: 20230803
  Receipt Date: 20240305
  Transmission Date: 20240410
  Serious: Yes (Other)
  Sender: FDA-Public Use
  Company Number: US-AMX-004362

PATIENT
  Age: 74 Year
  Sex: Male

DRUGS (2)
  1. RELYVRIO [Suspect]
     Active Substance: SODIUM PHENYLBUTYRATE\TAURURSODIOL
     Indication: Amyotrophic lateral sclerosis
     Dosage: 1 SACHET ONCE DAILY FOR 3 WEEKS, THEN 1 SACHET TWICE DAILY.
     Route: 048
     Dates: start: 202307
  2. RADICAVA ORS [Concomitant]
     Active Substance: EDARAVONE
     Indication: Product used for unknown indication

REACTIONS (5)
  - Syncope [Unknown]
  - Fall [Unknown]
  - Pyrexia [Unknown]
  - Dizziness [Unknown]
  - Body temperature increased [Unknown]

NARRATIVE: CASE EVENT DATE: 20240214
